FAERS Safety Report 9467452 (Version 1)
Quarter: 2013Q3

REPORT INFORMATION
  Report Type: Report from Study
  Country: BR (occurrence: BR)
  Receive Date: 20130821
  Receipt Date: 20130821
  Transmission Date: 20140515
  Serious: Yes (Life-Threatening, Hospitalization, Other)
  Sender: FDA-Public Use
  Company Number: PHHY2013BR090028

PATIENT
  Sex: Male

DRUGS (2)
  1. DIOVAN AMLO FIX [Suspect]
     Indication: BLOOD PRESSURE ABNORMAL
     Dosage: 1 DF (160/5MG), DAILY
  2. DIOVAN AMLO FIX [Suspect]
     Dosage: 1 DF (160/5MG), BID (ONE TABLET IN THE MORNING AND ONE TABLET AT NIGHT)

REACTIONS (5)
  - Coma [Unknown]
  - Head injury [Unknown]
  - Dementia Alzheimer^s type [Unknown]
  - Cerebrovascular accident [Unknown]
  - Blood pressure inadequately controlled [Unknown]
